FAERS Safety Report 14602777 (Version 2)
Quarter: 2018Q2

REPORT INFORMATION
  Report Type: Spontaneous
  Country: PL (occurrence: PL)
  Receive Date: 20180306
  Receipt Date: 20180414
  Transmission Date: 20180711
  Serious: Yes (Other)
  Sender: FDA-Public Use
  Company Number: PL-ROCHE-2078558

PATIENT
  Age: 60 Year
  Sex: Female

DRUGS (9)
  1. HERCEPTIN [Suspect]
     Active Substance: TRASTUZUMAB
     Indication: BREAST CANCER METASTATIC
     Route: 065
     Dates: start: 201309, end: 20140914
  2. DOCETAXEL. [Suspect]
     Active Substance: DOCETAXEL
     Indication: BREAST CANCER METASTATIC
     Dosage: 75MG/M2 FIRST DOSE, NEXT 100 MG/M2
     Route: 065
     Dates: start: 201608
  3. CYCLOPHOSPHAMIDE. [Suspect]
     Active Substance: CYCLOPHOSPHAMIDE
     Indication: BREAST CANCER METASTATIC
     Route: 065
     Dates: start: 20130505, end: 20130910
  4. XGEVA [Suspect]
     Active Substance: DENOSUMAB
     Indication: BREAST CANCER METASTATIC
     Route: 065
     Dates: start: 201608
  5. PERJETA [Suspect]
     Active Substance: PERTUZUMAB
     Indication: BREAST CANCER METASTATIC
     Dosage: FIRST DOSE 840MG, NEXT 420 MG
     Route: 065
     Dates: start: 201608
  6. HERCEPTIN [Suspect]
     Active Substance: TRASTUZUMAB
     Dosage: FIRST DOSE 8MG/KG BW, NEXT 6MG/KG BW
     Route: 065
     Dates: start: 201608
  7. DOXORUBICIN [Suspect]
     Active Substance: DOXORUBICIN
     Indication: BREAST CANCER METASTATIC
     Route: 065
     Dates: start: 20130505, end: 20130910
  8. ETRUZIL [Suspect]
     Active Substance: LETROZOLE
     Indication: BREAST CANCER METASTATIC
     Route: 065
     Dates: start: 201512, end: 201606
  9. NOLVADEX D [Suspect]
     Active Substance: TAMOXIFEN CITRATE
     Indication: BREAST CANCER METASTATIC
     Route: 065
     Dates: start: 20151113

REACTIONS (6)
  - Metastasis [Unknown]
  - Osteolysis [Unknown]
  - Osteosclerosis [Unknown]
  - Breast cancer metastatic [Unknown]
  - Metastases to bone [Unknown]
  - Bone disorder [Unknown]

NARRATIVE: CASE EVENT DATE: 201607
